FAERS Safety Report 15608455 (Version 1)
Quarter: 2018Q4

REPORT INFORMATION
  Report Type: Spontaneous
  Country: JP (occurrence: JP)
  Receive Date: 20181112
  Receipt Date: 20181112
  Transmission Date: 20190205
  Serious: Yes (Death, Other)
  Sender: FDA-Public Use
  Company Number: JP-ROCHE-2191610

PATIENT
  Age: 42 Year
  Sex: Female
  Weight: 49 kg

DRUGS (3)
  1. AVASTIN [Suspect]
     Active Substance: BEVACIZUMAB
     Indication: OVARIAN CANCER
     Route: 041
     Dates: start: 2018
  2. CARBOPLATIN. [Concomitant]
     Active Substance: CARBOPLATIN
     Indication: OVARIAN CANCER
     Route: 041
     Dates: start: 2018
  3. PACLITAXEL. [Concomitant]
     Active Substance: PACLITAXEL
     Indication: OVARIAN CANCER
     Route: 041
     Dates: start: 2018

REACTIONS (5)
  - Malignant ascites [Unknown]
  - Small intestinal perforation [Fatal]
  - Ovarian cancer [Fatal]
  - Disseminated intravascular coagulation [Unknown]
  - Small intestinal obstruction [Fatal]

NARRATIVE: CASE EVENT DATE: 20180417
